FAERS Safety Report 13493543 (Version 2)
Quarter: 2017Q2

REPORT INFORMATION
  Report Type: Spontaneous
  Country: US (occurrence: US)
  Receive Date: 20170427
  Receipt Date: 20170502
  Transmission Date: 20170830
  Serious: No
  Sender: FDA-Public Use
  Company Number: US-ACTELION-A-NJ2017-153062

PATIENT
  Age: 86 Year
  Sex: Female

DRUGS (1)
  1. VALCHLOR [Suspect]
     Active Substance: MECHLORETHAMINE
     Indication: MYCOSIS FUNGOIDES
     Dosage: UNK
     Route: 061
     Dates: start: 20170408

REACTIONS (5)
  - Nervousness [Unknown]
  - Lip swelling [Unknown]
  - Skin discolouration [Not Recovered/Not Resolved]
  - Paraesthesia oral [Unknown]
  - Therapy non-responder [Not Recovered/Not Resolved]
